FAERS Safety Report 23140766 (Version 1)
Quarter: 2023Q4

REPORT INFORMATION
  Report Type: Spontaneous
  Country: US (occurrence: US)
  Receive Date: 20231103
  Receipt Date: 20231103
  Transmission Date: 20240110
  Serious: No
  Sender: FDA-Public Use
  Company Number: US-ADVANZ PHARMA-202309007807

PATIENT

DRUGS (2)
  1. CLONIDINE HYDROCHLORIDE [Suspect]
     Active Substance: CLONIDINE HYDROCHLORIDE
     Indication: Autism spectrum disorder
     Dosage: UNK, MORE THAN A DECADE, STOPPED SINCE THE PAST FEW MONTHS
  2. CLONIDINE HYDROCHLORIDE [Suspect]
     Active Substance: CLONIDINE HYDROCHLORIDE
     Indication: Attention deficit hyperactivity disorder

REACTIONS (3)
  - Withdrawal syndrome [Unknown]
  - Product dose omission issue [Unknown]
  - Product availability issue [Unknown]
